FAERS Safety Report 18347195 (Version 1)
Quarter: 2020Q4

REPORT INFORMATION
  Report Type: Other
  Country: US (occurrence: US)
  Receive Date: 20201005
  Receipt Date: 20201005
  Transmission Date: 20210114
  Serious: No
  Sender: FDA-Public Use
  Company Number: US-ROCHE-2688372

PATIENT
  Age: 56 Year
  Sex: Female
  Weight: 90.35 kg

DRUGS (13)
  1. LISINOPRIL. [Concomitant]
     Active Substance: LISINOPRIL
     Indication: HYPERTENSION
     Route: 048
     Dates: start: 2012
  2. HYDROCODONE [Concomitant]
     Active Substance: HYDROCODONE
     Indication: PAIN
     Dosage: DOSE: 10-325MG, TAKEN AS NEEDED FOR PAIN
     Route: 048
     Dates: start: 2018
  3. LYSINE [Concomitant]
     Active Substance: LYSINE
     Route: 048
     Dates: start: 202005
  4. OCREVUS [Suspect]
     Active Substance: OCRELIZUMAB
     Indication: RELAPSING MULTIPLE SCLEROSIS
  5. POTASSIUM [Concomitant]
     Active Substance: POTASSIUM
     Dosage: DOSE: 10 TBCR
     Route: 048
     Dates: start: 2019
  6. LEVOTHYROXINE. [Concomitant]
     Active Substance: LEVOTHYROXINE
     Route: 048
     Dates: start: 2010
  7. FUROSEMIDE. [Concomitant]
     Active Substance: FUROSEMIDE
     Route: 048
     Dates: start: 2019
  8. TRIMETHOPRIM. [Concomitant]
     Active Substance: TRIMETHOPRIM
     Route: 048
     Dates: start: 2010
  9. VIT D [Concomitant]
     Active Substance: VITAMIN D NOS
     Indication: MULTIPLE SCLEROSIS
     Route: 048
     Dates: start: 2000
  10. OCREVUS [Suspect]
     Active Substance: OCRELIZUMAB
     Indication: SECONDARY PROGRESSIVE MULTIPLE SCLEROSIS
     Dosage: SECOND DOSE: 01/OCT/2020, THEN EVERY 6 MONTHS
     Route: 065
     Dates: start: 20200903
  11. BACLOFEN. [Concomitant]
     Active Substance: BACLOFEN
     Dosage: 2 TAB IN AM, 1 TAB IN AFTERNOON AND 1 IN PM
     Route: 048
     Dates: start: 2000
  12. TEGRETAL [Concomitant]
     Active Substance: CARBAMAZEPINE
     Indication: SEIZURE
     Route: 048
     Dates: start: 1990
  13. ATORVASTATIN [Concomitant]
     Active Substance: ATORVASTATIN
     Indication: BLOOD CHOLESTEROL INCREASED
     Route: 048
     Dates: start: 2016

REACTIONS (1)
  - Oral herpes [Recovered/Resolved]

NARRATIVE: CASE EVENT DATE: 20200910
